FAERS Safety Report 6110493-X (Version None)
Quarter: 2009Q1

REPORT INFORMATION
  Report Type: 
  Country: None (occurrence: None)
  Receive Date: 20090310
  Receipt Date: 20090225
  Transmission Date: 20090719
  Serious: Yes (Hospitalization)
  Sender: FDA-Public Use
  Company Number: JP-ELI_LILLY_AND_COMPANY-JP200903000833

PATIENT
  Age: 48 Year
  Sex: Female

DRUGS (3)
  1. ZYPREXA [Suspect]
     Indication: ANOREXIA NERVOSA
     Route: 048
  2. BENZODIAZEPINE DERIVATIVES [Concomitant]
     Indication: ANOREXIA NERVOSA
  3. SSRI [Concomitant]
     Indication: ANOREXIA NERVOSA

REACTIONS (2)
  - ELECTROLYTE IMBALANCE [None]
  - NEUROLEPTIC MALIGNANT SYNDROME [None]
